FAERS Safety Report 9357367 (Version 1)
Quarter: 2013Q2

REPORT INFORMATION
  Report Type: Spontaneous
  Country: IL (occurrence: IL)
  Receive Date: 20130620
  Receipt Date: 20130620
  Transmission Date: 20140414
  Serious: Yes (Other)
  Sender: FDA-Public Use
  Company Number: IL-JNJFOC-20130608867

PATIENT
  Sex: 0

DRUGS (2)
  1. DOXORUBICIN HYDROCHLORIDE [Suspect]
     Indication: BREAST CANCER METASTATIC
     Dosage: PEGYLATED; DISCONTINUED AFTER THREE COURSES
     Route: 042
  2. DOCETAXEL [Suspect]
     Indication: BREAST CANCER METASTATIC
     Dosage: DISCONTINUED AFTER THREE COURSES
     Route: 065

REACTIONS (2)
  - Skin toxicity [Unknown]
  - Toxicity to various agents [Unknown]
